FAERS Safety Report 11991934 (Version 1)
Quarter: 2016Q1

REPORT INFORMATION
  Report Type: Spontaneous
  Country: US (occurrence: US)
  Receive Date: 20160203
  Receipt Date: 20160203
  Transmission Date: 20160526
  Serious: No
  Sender: FDA-Public Use
  Company Number: US-JNJFOC-20151216681

PATIENT
  Age: 4 Year
  Sex: Male
  Weight: 16.33 kg

DRUGS (2)
  1. CHILDRENS MOTRIN [Suspect]
     Active Substance: IBUPROFEN
     Indication: PYREXIA
     Dosage: 1 1/2 TSP EVERY 5 1/2-8 HOURS AS NEEDED
     Route: 048
     Dates: start: 20151215, end: 20151216
  2. CHILDRENS MOTRIN [Suspect]
     Active Substance: IBUPROFEN
     Route: 048

REACTIONS (1)
  - Inappropriate schedule of drug administration [Unknown]
